FAERS Safety Report 8560615-6 (Version None)
Quarter: 2012Q3

REPORT INFORMATION
  Report Type: 
  Country: None (occurrence: None)
  Receive Date: 20120802
  Receipt Date: 20120725
  Transmission Date: 20120928
  Serious: Yes (Hospitalization)
  Sender: FDA-Public Use
  Company Number: GB-TEVA-350274ISR

PATIENT
  Age: 43 Year
  Sex: Female

DRUGS (6)
  1. CLARITHROMYCIN [Suspect]
     Indication: LOWER RESPIRATORY TRACT INFECTION
     Route: 048
     Dates: start: 20120511, end: 20120514
  2. DIAZEPAM [Concomitant]
     Route: 048
  3. OXYCODONE HCL [Concomitant]
     Route: 048
  4. LIOTHYRONINE SODIUM [Concomitant]
     Route: 048
  5. FENTANYL CITRATE [Concomitant]
  6. DULOXETINE [Concomitant]
     Route: 048

REACTIONS (6)
  - AGITATION [None]
  - OVERDOSE [None]
  - ANXIETY [None]
  - HEADACHE [None]
  - CONFUSIONAL STATE [None]
  - PERSONALITY CHANGE [None]
